FAERS Safety Report 8155767-6 (Version None)
Quarter: 2012Q1

REPORT INFORMATION
  Report Type: 
  Country: None (occurrence: None)
  Receive Date: 20120215
  Receipt Date: 20120202
  Transmission Date: 20120608
  Serious: Yes (Disabling)
  Sender: FDA-Public Use
  Company Number: 2012MA001763

PATIENT
  Age: 76 Year
  Sex: Male

DRUGS (5)
  1. TRIMETHOPRIM [Concomitant]
  2. LOSARTAN POTASSIUM [Suspect]
     Indication: HYPERTENSION
     Dosage: 100 MG, PO
     Route: 048
     Dates: start: 20111014, end: 20111019
  3. PRAVASTATIN [Concomitant]
  4. ACETYLSALICYLIC ACID SRT [Concomitant]
  5. CORZIDE [Concomitant]

REACTIONS (3)
  - INFLUENZA LIKE ILLNESS [None]
  - PAIN [None]
  - URINARY TRACT INFECTION [None]
